FAERS Safety Report 13202660 (Version 1)
Quarter: 2017Q1

REPORT INFORMATION
  Report Type: Spontaneous
  Country: US (occurrence: US)
  Receive Date: 20170209
  Receipt Date: 20170209
  Transmission Date: 20170428
  Serious: No
  Sender: FDA-Public Use
  Company Number: US-BAYER-2017-024845

PATIENT
  Age: 98 Year
  Sex: Female
  Weight: 45 kg

DRUGS (4)
  1. PETROLEUM JELLY [Concomitant]
     Active Substance: PETROLATUM
     Indication: ECZEMA
  2. ALEVE [Suspect]
     Active Substance: NAPROXEN SODIUM
     Indication: PAIN
     Dosage: 1 DF, BID
     Route: 048
     Dates: start: 201701
  3. STOOL SOFTENER [Concomitant]
  4. UNSPECIFIED INGREDIENT [Concomitant]
     Active Substance: UNSPECIFIED INGREDIENT
     Indication: GLAUCOMA

REACTIONS (3)
  - Product use issue [Unknown]
  - Expired product administered [Unknown]
  - Product use issue [Unknown]

NARRATIVE: CASE EVENT DATE: 201701
